FAERS Safety Report 4774563-0 (Version None)
Quarter: 2005Q3

REPORT INFORMATION
  Report Type: 
  Country: None (occurrence: None)
  Receive Date: 20050921
  Receipt Date: 20050217
  Transmission Date: 20060218
  Serious: Yes (Other)
  Sender: FDA-Public Use
  Company Number: PHNU2005DE00993

PATIENT
  Age: 65 Year
  Sex: Female

DRUGS (1)
  1. ZOMETA [Suspect]
     Indication: PLASMACYTOMA
     Dosage: 4 MG, QMO
     Dates: start: 20030527, end: 20050101

REACTIONS (3)
  - DENTAL OPERATION [None]
  - OSTEONECROSIS [None]
  - PRIMARY SEQUESTRUM [None]
